FAERS Safety Report 8837965 (Version 2)
Quarter: 2014Q1

REPORT INFORMATION
  Report Type: Report from Study
  Country: IT (occurrence: IT)
  Receive Date: 20121012
  Receipt Date: 20140325
  Transmission Date: 20141002
  Serious: Yes (Death, Hospitalization)
  Sender: FDA-Public Use
  Company Number: IT-ROCHE-1144578

PATIENT
  Age: 35 Year
  Sex: Male

DRUGS (4)
  1. AVASTIN [Suspect]
     Indication: COLON CANCER
     Route: 041
     Dates: start: 20111121, end: 20120910
  2. AVASTIN [Suspect]
     Indication: COLON CANCER METASTATIC
  3. XELODA [Concomitant]
     Indication: COLON CANCER
     Route: 048
     Dates: start: 20120917, end: 20120920
  4. LANSOPRAZOLE [Concomitant]
     Route: 048
     Dates: start: 20100921, end: 20120920

REACTIONS (3)
  - Acute abdomen [Fatal]
  - Intestinal perforation [Fatal]
  - Septic shock [Fatal]
